FAERS Safety Report 8213357-0 (Version None)
Quarter: 2012Q1

REPORT INFORMATION
  Report Type: 
  Country: None (occurrence: None)
  Receive Date: 20120315
  Receipt Date: 20120315
  Transmission Date: 20120608
  Serious: No
  Sender: FDA-Public Use
  Company Number: US-PFIZER INC-2012053691

PATIENT
  Sex: Male
  Weight: 106 kg

DRUGS (3)
  1. COZAAR [Concomitant]
     Indication: HYPERTENSION
     Dosage: 100 MG, DAILY
  2. OMEPRAZOLE [Concomitant]
     Indication: BLOOD CHOLESTEROL INCREASED
     Dosage: UNK
  3. CHANTIX [Suspect]
     Indication: SMOKING CESSATION THERAPY
     Dosage: 0.5 MG, 2X/DAY
     Route: 048
     Dates: start: 20120201

REACTIONS (4)
  - MOOD ALTERED [None]
  - FEELING ABNORMAL [None]
  - RESTLESSNESS [None]
  - EMOTIONAL DISORDER [None]
